FAERS Safety Report 11961712 (Version 2)
Quarter: 2016Q1

REPORT INFORMATION
  Report Type: Report from Study
  Country: US (occurrence: US)
  Receive Date: 20160126
  Receipt Date: 20160202
  Transmission Date: 20160526
  Serious: No
  Sender: FDA-Public Use
  Company Number: US-ABBVIE-15K-163-1373064-00

PATIENT
  Age: 11 Year
  Sex: Male
  Weight: 28.15 kg

DRUGS (3)
  1. HUMIRA [Suspect]
     Active Substance: ADALIMUMAB
     Indication: CROHN^S DISEASE
     Dosage: DAY 1 LOADING DOSE
     Route: 065
     Dates: start: 20150320, end: 20150320
  2. HUMIRA [Suspect]
     Active Substance: ADALIMUMAB
     Dosage: DAY 15 LOADING DOSE
     Route: 065
     Dates: start: 20150403, end: 20150403
  3. HUMIRA [Suspect]
     Active Substance: ADALIMUMAB
     Route: 065

REACTIONS (3)
  - Haemorrhoids [Unknown]
  - Haematochezia [Recovered/Resolved]
  - Rectal tenesmus [Unknown]

NARRATIVE: CASE EVENT DATE: 2015
